FAERS Safety Report 14320469 (Version 2)
Quarter: 2017Q4

REPORT INFORMATION
  Report Type: Report from Study
  Country: US (occurrence: US)
  Receive Date: 20171222
  Receipt Date: 20171227
  Transmission Date: 20180321
  Serious: Yes (Hospitalization)
  Sender: FDA-Public Use
  Company Number: US-ACTELION-A-NJ2015-112549

PATIENT
  Age: 67 Year
  Sex: Female
  Weight: 71.66 kg

DRUGS (4)
  1. OPSUMIT [Suspect]
     Active Substance: MACITENTAN
     Indication: PULMONARY HYPERTENSION
     Dosage: 10 MG, QD
     Route: 048
     Dates: start: 201409
  2. AMLODIPINE [Concomitant]
     Active Substance: AMLODIPINE BESYLATE
  3. SILDENAFIL. [Concomitant]
     Active Substance: SILDENAFIL
  4. REMODULIN [Concomitant]
     Active Substance: TREPROSTINIL
     Dosage: UNK
     Dates: end: 20171215

REACTIONS (15)
  - Seasonal allergy [Unknown]
  - Sinusitis [Unknown]
  - Dyspnoea exertional [Unknown]
  - Nasal discharge discolouration [Unknown]
  - Eye pruritus [Unknown]
  - Nasopharyngitis [Unknown]
  - Productive cough [Unknown]
  - Malaise [Unknown]
  - Unevaluable event [Unknown]
  - Dyspnoea [Unknown]
  - Ocular hyperaemia [Unknown]
  - Cough [Unknown]
  - Cardiac failure [Unknown]
  - Lacrimation increased [Unknown]
  - Paranasal sinus hypersecretion [Unknown]
